FAERS Safety Report 5329952-2 (Version None)
Quarter: 2007Q2

REPORT INFORMATION
  Report Type: 
  Country: None (occurrence: None)
  Receive Date: 20070521
  Receipt Date: 20070515
  Transmission Date: 20071010
  Serious: Yes (Death)
  Sender: FDA-Public Use
  Company Number: US-GENENTECH-236767

PATIENT
  Sex: Female
  Weight: 73.015 kg

DRUGS (11)
  1. BEVACIZUMAB [Suspect]
     Indication: NON-SMALL CELL LUNG CANCER
     Dosage: 1143 MG, Q3W
     Route: 042
     Dates: start: 20070115
  2. ELOXATIN [Suspect]
     Indication: NON-SMALL CELL LUNG CANCER
     Dosage: 935 MG, Q3W
     Route: 042
     Dates: start: 20070115
  3. ALIMTA [Suspect]
     Indication: NON-SMALL CELL LUNG CANCER
     Dosage: 224 MG, Q3W
     Route: 048
     Dates: start: 20070115
  4. ZOFRAN [Concomitant]
     Indication: NAUSEA
     Dosage: 8 MG, Q8H
     Route: 048
     Dates: start: 20070108
  5. XANAX [Concomitant]
     Indication: ANXIETY
     Dosage: 0.25 MG, PRN
     Route: 048
     Dates: start: 20070108
  6. PHENERGAN HCL [Concomitant]
     Indication: NAUSEA
     Dosage: 25 MG, PRN
     Route: 048
     Dates: start: 20070213
  7. COLACE [Concomitant]
     Indication: CONSTIPATION
     Dosage: 250 MG, PRN
     Route: 048
     Dates: start: 20070108
  8. COUMADIN [Concomitant]
     Indication: PULMONARY EMBOLISM
     Dosage: 5 MG, QID
     Route: 048
     Dates: start: 20070131
  9. DILAUDID [Concomitant]
     Indication: DRUG USE FOR UNKNOWN INDICATION
     Dosage: 25 MG, UNK
     Route: 042
     Dates: start: 20070110
  10. LYRICA [Concomitant]
     Indication: PAIN
     Dosage: 75 MG, TID
     Route: 048
     Dates: start: 20070131
  11. FOLIC ACID [Concomitant]
     Indication: DRUG USE FOR UNKNOWN INDICATION
     Dosage: 1000 MG, QD
     Route: 048
     Dates: start: 20070108

REACTIONS (1)
  - DEATH [None]
